FAERS Safety Report 4443153-1 (Version None)
Quarter: 2004Q3

REPORT INFORMATION
  Report Type: 
  Country: None (occurrence: None)
  Receive Date: 20040903
  Receipt Date: 20040624
  Transmission Date: 20050211
  Serious: Yes (Other)
  Sender: FDA-Public Use
  Company Number: 2004UW13099

PATIENT
  Age: 60 Year
  Sex: Female
  Weight: 48.0813 kg

DRUGS (3)
  1. CRESTOR [Suspect]
     Indication: HYPERCHOLESTEROLAEMIA
     Dosage: 5 MG PO
     Route: 048
     Dates: start: 20040610
  2. NEURONTIN [Concomitant]
  3. ARAVA [Concomitant]

REACTIONS (2)
  - ALOPECIA [None]
  - STOMACH DISCOMFORT [None]
